FAERS Safety Report 14415424 (Version 2)
Quarter: 2018Q1

REPORT INFORMATION
  Report Type: Report from Study
  Country: BR (occurrence: BR)
  Receive Date: 20180121
  Receipt Date: 20180123
  Transmission Date: 20180509
  Serious: No
  Sender: FDA-Public Use
  Company Number: PHHY2017BR119047

PATIENT
  Sex: Male
  Weight: 86 kg

DRUGS (2)
  1. FLUOXETIN [Concomitant]
     Active Substance: FLUOXETINE HYDROCHLORIDE
     Indication: PRODUCT USED FOR UNKNOWN INDICATION
     Route: 065
  2. COSENTYX [Suspect]
     Active Substance: SECUKINUMAB
     Indication: PSORIASIS
     Dosage: 300 MG, QW (STARTED AROUND THE MIDDLE OF LAST YEAR)
     Route: 058
     Dates: start: 20170720

REACTIONS (4)
  - Influenza [Unknown]
  - Feeling abnormal [Unknown]
  - Malaise [Unknown]
  - Dyspnoea [Recovered/Resolved]
